FAERS Safety Report 7582750-1 (Version None)
Quarter: 2011Q2

REPORT INFORMATION
  Report Type: 
  Country: None (occurrence: None)
  Receive Date: 20110630
  Receipt Date: 20110623
  Transmission Date: 20111010
  Serious: Yes (Hospitalization)
  Sender: FDA-Public Use
  Company Number: DE-PFIZER INC-2011124498

PATIENT
  Age: 69 Year
  Sex: Female

DRUGS (1)
  1. ZITHROMAX [Suspect]
     Indication: LUNG INFECTION
     Dosage: 250 MG, 2X/DAY
     Route: 048
     Dates: end: 20110601

REACTIONS (2)
  - DRUG INEFFECTIVE [None]
  - UNRESPONSIVE TO STIMULI [None]
